FAERS Safety Report 7946731-8 (Version None)
Quarter: 2011Q4

REPORT INFORMATION
  Report Type: 
  Country: None (occurrence: None)
  Receive Date: 20111125
  Receipt Date: 20111114
  Transmission Date: 20120403
  Serious: Yes (Other)
  Sender: FDA-Public Use
  Company Number: 2011MA016663

PATIENT
  Age: 84 Year
  Sex: Female

DRUGS (4)
  1. NOVOLOG MIX 70/30 [Concomitant]
  2. RAMIPRIL [Suspect]
     Dates: start: 20111101
  3. CALCIUM CHANNEL BLOCKERS [Concomitant]
  4. ENZIRA [Concomitant]

REACTIONS (3)
  - OEDEMA MOUTH [None]
  - LIP SWELLING [None]
  - SWOLLEN TONGUE [None]
